FAERS Safety Report 10253418 (Version 1)
Quarter: 2014Q2

REPORT INFORMATION
  Report Type: Spontaneous
  Country: US (occurrence: US)
  Receive Date: 20140623
  Receipt Date: 20140623
  Transmission Date: 20141212
  Serious: No
  Sender: FDA-Public Use
  Company Number: US-BAYER-2014-092515

PATIENT
  Sex: Female
  Weight: 52.15 kg

DRUGS (1)
  1. ESTRADIOL HEMIHYDRATE (PATCH) [Suspect]
     Dosage: 0.1 MG/DAY
     Route: 062
     Dates: start: 2014

REACTIONS (3)
  - Product adhesion issue [None]
  - Application site discolouration [None]
  - Inappropriate schedule of drug administration [None]
